FAERS Safety Report 6680385-6 (Version None)
Quarter: 2010Q2

REPORT INFORMATION
  Report Type: 
  Country: None (occurrence: None)
  Receive Date: 20100412
  Receipt Date: 20100401
  Transmission Date: 20101027
  Serious: Yes (Death, Hospitalization)
  Sender: FDA-Public Use
  Company Number: 97768

PATIENT
  Age: 61 Year
  Sex: Male

DRUGS (4)
  1. CARBOPLATIN [Suspect]
     Indication: METASTATIC CARCINOMA OF THE BLADDER
     Dosage: AUC 5
  2. PACLITAXEL [Suspect]
     Indication: METASTATIC CARCINOMA OF THE BLADDER
     Dosage: 200MG/M2
  3. TRASTUZUMAB [Concomitant]
  4. CHEMOTHERAPY [Concomitant]

REACTIONS (8)
  - DEMYELINATING POLYNEUROPATHY [None]
  - LOSS OF PROPRIOCEPTION [None]
  - MENINGITIS [None]
  - METASTASES TO CENTRAL NERVOUS SYSTEM [None]
  - NERVE COMPRESSION [None]
  - PARAESTHESIA [None]
  - PROCEDURAL COMPLICATION [None]
  - UROSEPSIS [None]
